FAERS Safety Report 7896726-8 (Version None)
Quarter: 2011Q4

REPORT INFORMATION
  Report Type: 
  Country: None (occurrence: None)
  Receive Date: 20111103
  Receipt Date: 20111019
  Transmission Date: 20120403
  Serious: Yes (Other)
  Sender: FDA-Public Use
  Company Number: TPA2011A06896

PATIENT
  Age: 76 Year
  Sex: Male
  Weight: 83.4619 kg

DRUGS (4)
  1. ACTOS [Suspect]
     Indication: TYPE 2 DIABETES MELLITUS
     Dosage: 45 MG, 1 IN 1 D, PER ORAL
     Route: 048
     Dates: end: 20110901
  2. METFORMIN HCL [Concomitant]
  3. UNSPECIFIED ANTIBIOTIC (CHLORAMPHENICOL) [Concomitant]
  4. UNSPECIFIED ANTIHYPERTENSIVE (ANTIHYPERTENSIVES) [Concomitant]

REACTIONS (2)
  - PANCREATIC CARCINOMA [None]
  - HEPATIC NEOPLASM MALIGNANT [None]
